FAERS Safety Report 10742806 (Version 2)
Quarter: 2015Q1

REPORT INFORMATION
  Report Type: Report from Study
  Country: CA (occurrence: CA)
  Receive Date: 20150127
  Receipt Date: 20150317
  Transmission Date: 20150721
  Serious: Yes (Death, Other)
  Sender: FDA-Public Use
  Company Number: CA-GILEAD-2015-0133224

PATIENT
  Age: 22 Year
  Sex: Female

DRUGS (18)
  1. SYMBICORT [Concomitant]
     Active Substance: BUDESONIDE\FORMOTEROL FUMARATE DIHYDRATE
     Dosage: 200/6, BID
  2. PANCREASE                          /00014701/ [Concomitant]
     Dosage: APPROXIMATELY 28/DAY
  3. VITAMIN D                          /00107901/ [Concomitant]
     Active Substance: ERGOCALCIFEROL
     Dosage: 1000 IU, UNK
  4. LASA DAY [Concomitant]
  5. PRENATAL VITAMINS                  /02014401/ [Concomitant]
     Active Substance: VITAMINS
  6. RANITIDINE [Concomitant]
     Active Substance: RANITIDINE\RANITIDINE HYDROCHLORIDE
     Dosage: 150 MG, QD
  7. CALCIUM [Concomitant]
     Active Substance: CALCIUM
  8. AZITHROMYCIN [Concomitant]
     Active Substance: AZITHROMYCIN ANHYDROUS
     Dosage: 500 MG, EVERY M/W/F
  9. AZTREONAM LYSINE [Suspect]
     Active Substance: AZTREONAM LYSINE
     Indication: CYSTIC FIBROSIS
     Dosage: 75 MG, TID INTERMITTENT USE
     Route: 055
     Dates: start: 2013
  10. VITAMIN D                          /00107901/ [Concomitant]
     Active Substance: ERGOCALCIFEROL
     Dosage: 133 UNK, UNK
  11. VITAMIN C [Concomitant]
     Active Substance: ASCORBIC ACID
  12. URSO [Concomitant]
     Active Substance: URSODIOL
     Dosage: 250 MG, BID
  13. FERROUS GLUCONATE [Concomitant]
     Active Substance: FERROUS GLUCONATE
     Dosage: 30 MG, QD
  14. VENTOLIN [Concomitant]
     Active Substance: ALBUTEROL SULFATE
  15. MAGNESIUM [Concomitant]
     Active Substance: MAGNESIUM
  16. AZTREONAM LYSINE [Suspect]
     Active Substance: AZTREONAM LYSINE
     Indication: PSEUDOMONAS INFECTION
  17. PULMOZYME [Concomitant]
     Active Substance: DORNASE ALFA
     Dosage: 2.5 MG, UNK
     Route: 055
  18. HUMALOG [Concomitant]
     Active Substance: INSULIN LISPRO
     Dosage: 3 UNKNOWN, UNK

REACTIONS (2)
  - Cardio-respiratory arrest [Fatal]
  - Caesarean section [Fatal]

NARRATIVE: CASE EVENT DATE: 201501
